FAERS Safety Report 7635087-6 (Version None)
Quarter: 2011Q3

REPORT INFORMATION
  Report Type: 
  Country: None (occurrence: None)
  Receive Date: 20110718
  Receipt Date: 20110711
  Transmission Date: 20111222
  Serious: Yes (Life-Threatening, Hospitalization)
  Sender: FDA-Public Use
  Company Number: 2011SP022033

PATIENT
  Age: 79 Year
  Sex: Male
  Weight: 77.3 kg

DRUGS (18)
  1. MULTI-VITAMIN [Concomitant]
  2. SERTRALINE HYDROCHLORIDE [Concomitant]
  3. TEMODAR [Suspect]
     Indication: MALIGNANT GLIOMA
     Dosage: 100 MG;QD;PO 50 MG/M2;QD;
     Route: 048
     Dates: end: 20110601
  4. TEMODAR [Suspect]
     Indication: MALIGNANT GLIOMA
     Dosage: 100 MG;QD;PO 50 MG/M2;QD;
     Route: 048
     Dates: start: 20110210, end: 20110225
  5. LOVENOX [Concomitant]
  6. ASCORBIC ACID [Concomitant]
  7. ALBUTEROL INHALER [Concomitant]
  8. VORINOSTAT [Suspect]
     Indication: MALIGNANT GLIOMA
     Dosage: 400 MG;QOW;PO 200 MG;
     Route: 048
     Dates: end: 20110601
  9. VORINOSTAT [Suspect]
     Indication: MALIGNANT GLIOMA
     Dosage: 400 MG;QOW;PO 200 MG;
     Route: 048
     Dates: start: 20110210
  10. NS [Concomitant]
  11. KEPPRA [Concomitant]
  12. AVASTIN [Suspect]
     Indication: MALIGNANT GLIOMA
     Dosage: 713 MG; QOW;IV
     Dates: start: 20110210, end: 20110221
  13. POTASSIUM [Concomitant]
  14. LEVETIRACETAM [Concomitant]
  15. ANDRODERM [Concomitant]
  16. HYDROCORTISONE [Concomitant]
  17. DEXAMETHASONE [Concomitant]
  18. ZOFRAN [Concomitant]

REACTIONS (16)
  - BALANCE DISORDER [None]
  - FALL [None]
  - SUBDURAL HAEMATOMA [None]
  - CONFUSIONAL STATE [None]
  - PLEURAL EFFUSION [None]
  - PNEUMONIA [None]
  - HYPOPHOSPHATAEMIA [None]
  - HYPOXIA [None]
  - ATELECTASIS [None]
  - HAEMOGLOBIN DECREASED [None]
  - INFECTION [None]
  - LOSS OF CONSCIOUSNESS [None]
  - CHILLS [None]
  - HYPOKALAEMIA [None]
  - HEAD INJURY [None]
  - GAIT DISTURBANCE [None]
